FAERS Safety Report 9959288 (Version 1)
Quarter: 2014Q1

REPORT INFORMATION
  Report Type: Report from Study
  Country: US (occurrence: US)
  Receive Date: 20140305
  Receipt Date: 20140305
  Transmission Date: 20141002
  Serious: No
  Sender: FDA-Public Use
  Company Number: US-ABBVIE-13P-163-1100316-00

PATIENT
  Age: 67 Year
  Sex: Male
  Weight: 90.8 kg

DRUGS (2)
  1. HUMIRA [Suspect]
     Indication: CROHN^S DISEASE
     Dates: start: 200607
  2. BENAZEPRIL [Concomitant]
     Indication: HYPERTENSION

REACTIONS (5)
  - Pain of skin [Recovered/Resolved]
  - Infection [Recovered/Resolved]
  - Rash [Recovering/Resolving]
  - Staphylococcal infection [Recovered/Resolved]
  - Fungal infection [Recovering/Resolving]
